FAERS Safety Report 10011673 (Version 1)
Quarter: 2014Q1

REPORT INFORMATION
  Report Type: Spontaneous
  Country: US (occurrence: None)
  Receive Date: 20140313
  Receipt Date: 20140313
  Transmission Date: 20141002
  Serious: Yes (Other)
  Sender: FDA-Public Use
  Company Number: None

PATIENT
  Age: 65 Year
  Sex: Female
  Weight: 77.3 kg

DRUGS (7)
  1. EXJADE [Suspect]
     Indication: IRON OVERLOAD
     Route: 048
     Dates: start: 20120601, end: 20120310
  2. ASPIRIN [Concomitant]
  3. LEVOTHYROXINE [Concomitant]
  4. OMEPRAXOLE [Concomitant]
  5. PREDNISONE [Concomitant]
  6. DARVOCET [Concomitant]
  7. VICODIN [Concomitant]

REACTIONS (1)
  - Ulcer [None]
